FAERS Safety Report 23346124 (Version 1)
Quarter: 2023Q4

REPORT INFORMATION
  Report Type: Report from Study
  Country: IT (occurrence: IT)
  Receive Date: 20231228
  Receipt Date: 20231228
  Transmission Date: 20240110
  Serious: Yes (Other)
  Sender: FDA-Public Use
  Company Number: None

PATIENT
  Age: 17 Year
  Sex: Male
  Weight: 67 kg

DRUGS (4)
  1. METHOTREXATE [Suspect]
     Active Substance: METHOTREXATE
     Indication: Precursor T-lymphoblastic lymphoma/leukaemia
     Dosage: 80 MILLIGRAM, QW, 80 MG (16 TABLETS OF 5 MG)/WEEK FROM, 14/09/2022
     Route: 048
     Dates: start: 20220914
  2. METHOTREXATE [Suspect]
     Active Substance: METHOTREXATE
     Dosage: 100 MILLIGRAM, QW, 100 MG (20 TABLETS OF 5 MG)/WEEK FROM 14/09/2023
     Route: 048
     Dates: start: 20230914
  3. PURINETHOL [Suspect]
     Active Substance: MERCAPTOPURINE
     Indication: Precursor T-lymphoblastic lymphoma/leukaemia
     Dosage: 100 MILLIGRAM, QD, 100 MG (2 TABLETS OF 50 MG) /DAY FROM 14/09/2022
     Route: 048
     Dates: start: 20220914
  4. PURINETHOL [Suspect]
     Active Substance: MERCAPTOPURINE
     Dosage: 125 MILLIGRAM, QD, 125 MG (2 TABLETS +1/2 TABLETS OF 50 MG)/DAY FROM 14/09/2023
     Route: 048
     Dates: start: 20230914

REACTIONS (1)
  - Hyperbilirubinaemia [Not Recovered/Not Resolved]

NARRATIVE: CASE EVENT DATE: 20231116
